FAERS Safety Report 8452222-0 (Version None)
Quarter: 2012Q2

REPORT INFORMATION
  Report Type: 
  Country: None (occurrence: None)
  Receive Date: 20120620
  Receipt Date: 20120618
  Transmission Date: 20120825
  Serious: No
  Sender: FDA-Public Use
  Company Number: US-BAYER-2012-060575

PATIENT
  Age: 86 Year
  Sex: Female
  Weight: 52 kg

DRUGS (7)
  1. IRON [Concomitant]
  2. ATORVASTATIN CALCIUM [Concomitant]
  3. TYLENOL PM [Concomitant]
  4. ALEVE (CAPLET) [Suspect]
     Dosage: 2 DF, BID
     Route: 048
     Dates: start: 20080101
  5. MULTI-VITAMIN [Concomitant]
  6. POTASSIUM CITRATE [Concomitant]
  7. DETROL LA [Concomitant]

REACTIONS (1)
  - NO ADVERSE EVENT [None]
